FAERS Safety Report 8955914 (Version 2)
Quarter: 2013Q1

REPORT INFORMATION
  Report Type: Spontaneous
  Country: DE (occurrence: DE)
  Receive Date: 20121210
  Receipt Date: 20130211
  Transmission Date: 20140127
  Serious: Yes (Life-Threatening, Other)
  Sender: FDA-Public Use
  Company Number: DE-ELI_LILLY_AND_COMPANY-DE201211008436

PATIENT
  Age: 56 Year
  Sex: Male
  Weight: 81.2 kg

DRUGS (2)
  1. CYMBALTA [Suspect]
     Indication: POLYNEUROPATHY
     Dosage: 30 MG, UNKNOWN
     Route: 048
     Dates: start: 20121108, end: 20121115
  2. MARCUMAR [Concomitant]
     Indication: SUBCLAVIAN VEIN THROMBOSIS
     Dosage: UNK
     Dates: start: 201006, end: 201212

REACTIONS (8)
  - Blood creatinine increased [Not Recovered/Not Resolved]
  - Glomerulonephritis acute [Unknown]
  - Paradoxical drug reaction [Recovered/Resolved]
  - Vomiting [Recovered/Resolved]
  - Nausea [Recovered/Resolved]
  - Restlessness [Recovered/Resolved]
  - Decreased appetite [Recovered/Resolved]
  - Off label use [Recovered/Resolved]
